FAERS Safety Report 6017829-9 (Version None)
Quarter: 2008Q4

REPORT INFORMATION
  Report Type: 
  Country: None (occurrence: None)
  Receive Date: 20081223
  Receipt Date: 20081212
  Transmission Date: 20090506
  Serious: Yes (Other)
  Sender: FDA-Public Use
  Company Number: IN-ROCHE-581701

PATIENT
  Age: 50 Year
  Sex: Female

DRUGS (10)
  1. MIRCERA [Suspect]
     Dosage: OTHER INDICATION: END STAGE RENAL DISEASE.
     Route: 058
     Dates: start: 20080720, end: 20080801
  2. ANTIHYPERTENSIVE NOS [Concomitant]
  3. SHELCAL [Concomitant]
  4. MULTIVITAMIN NOS [Concomitant]
  5. PANTOPRAZOLE SODIUM [Concomitant]
  6. SERTRALINE [Concomitant]
  7. UDILIV [Concomitant]
     Dosage: DRUG NAME REPORTED AS UDILIVE
  8. 1 CONCOMITANT DRUG [Concomitant]
     Dosage: DRUG NAME REPORTED AS PREGALIN-M
  9. CALCIUM [Concomitant]
     Dosage: DRUG: CALCID
  10. CEFIXIME CHEWABLE [Concomitant]

REACTIONS (1)
  - STEVENS-JOHNSON SYNDROME [None]
